FAERS Safety Report 6272123-6 (Version None)
Quarter: 2009Q3

REPORT INFORMATION
  Report Type: 
  Country: None (occurrence: None)
  Receive Date: 20090717
  Receipt Date: 20090706
  Transmission Date: 20100115
  Serious: Yes (Other)
  Sender: FDA-Public Use
  Company Number: NL-PFIZER INC-2009195582

PATIENT
  Age: 68 Year

DRUGS (1)
  1. TRANEXAMIC ACID [Suspect]
     Dosage: 50 MG, UNK
     Route: 037

REACTIONS (4)
  - MEDICATION ERROR [None]
  - MULTI-ORGAN DISORDER [None]
  - PARESIS [None]
  - STATUS EPILEPTICUS [None]
